FAERS Safety Report 9282369 (Version 1)
Quarter: 2013Q2

REPORT INFORMATION
  Report Type: Other
  Country: GB (occurrence: GB)
  Receive Date: 20130510
  Receipt Date: 20130510
  Transmission Date: 20140414
  Serious: Yes (Other)
  Sender: FDA-Public Use
  Company Number: GB-SUN PHARMACEUTICAL INDUSTRIES LTD-2013SUN00552

PATIENT
  Sex: 0

DRUGS (2)
  1. GEMCITABINE INJECTION [Suspect]
     Indication: PRODUCT USED FOR UNKNOWN INDICATION
     Route: 065
  2. LUCENTIS [Interacting]
     Indication: MACULAR DEGENERATION
     Route: 065

REACTIONS (2)
  - Drug interaction [Unknown]
  - Pancreatic carcinoma [Unknown]
